FAERS Safety Report 8559639-4 (Version None)
Quarter: 2012Q3

REPORT INFORMATION
  Report Type: 
  Country: None (occurrence: None)
  Receive Date: 20120802
  Receipt Date: 20120723
  Transmission Date: 20120928
  Serious: No
  Sender: FDA-Public Use
  Company Number: US-BAYER-2012-074386

PATIENT
  Age: 59 Year
  Sex: Female
  Weight: 99.773 kg

DRUGS (4)
  1. WATER RENTENTION MEDICATION [Concomitant]
  2. PEPCID [Concomitant]
  3. DIOVAN HCT [Concomitant]
  4. NAPROXEN (ALEVE) [Suspect]
     Indication: ANALGESIC THERAPY
     Dosage: 2 DF, PRN
     Route: 048
     Dates: start: 20070101, end: 20120713

REACTIONS (5)
  - VOMITING [None]
  - HYPERHIDROSIS [None]
  - BURNING SENSATION [None]
  - SWOLLEN TONGUE [None]
  - HYPOAESTHESIA ORAL [None]
